FAERS Safety Report 5764438-2 (Version None)
Quarter: 2008Q2

REPORT INFORMATION
  Report Type: 
  Country: None (occurrence: None)
  Receive Date: 20080605
  Receipt Date: 20080523
  Transmission Date: 20081010
  Serious: Yes (Life-Threatening, Hospitalization)
  Sender: FDA-Public Use
  Company Number: A-NJ2008-20550

PATIENT
  Age: 63 Year
  Sex: Female

DRUGS (3)
  1. TRACLEER [Suspect]
     Indication: PULMONARY HYPERTENSION
     Dosage: 125 MG, BID, ORAL; 62.5 MG, BID, ORAL
     Route: 048
     Dates: start: 20070301, end: 20070301
  2. TRACLEER [Suspect]
     Indication: PULMONARY HYPERTENSION
     Dosage: 125 MG, BID, ORAL; 62.5 MG, BID, ORAL
     Route: 048
     Dates: start: 20070301, end: 20080401
  3. REVATIO (SILDENAFIL CITRATE) [Concomitant]

REACTIONS (5)
  - ANAEMIA [None]
  - LIVER FUNCTION TEST ABNORMAL [None]
  - OFF LABEL USE [None]
  - PRESYNCOPE [None]
  - TACHYCARDIA [None]
